FAERS Safety Report 4614857-2 (Version None)
Quarter: 2005Q1

REPORT INFORMATION
  Report Type: 
  Country: None (occurrence: None)
  Receive Date: 20050318
  Receipt Date: 20050318
  Transmission Date: 20050727
  Serious: Yes (Hospitalization)
  Sender: FDA-Public Use
  Company Number: None

PATIENT
  Age: 71 Year
  Sex: Male

DRUGS (14)
  1. GATIFLOXACIN [Suspect]
     Indication: EMPYEMA
     Dosage: 400MG PO QD X5 DAYS
     Route: 048
     Dates: start: 20050103, end: 20050107
  2. LEVOFLOXACIN [Suspect]
     Dates: start: 20050107, end: 20040117
  3. ALBUTEROL 0.083% FOR INHL UD SOLN, INHL [Concomitant]
  4. CLINDAMYCIN CAP ORAL 300MG [Concomitant]
  5. ENALAPRIL MALEATE TAB 5MG [Concomitant]
  6. FOLIC ACID TAB 1MG [Concomitant]
  7. FUROSEMIDE INJ SOLN 80MG/8ML [Concomitant]
  8. GATIFLOXACIN TAB 400MG [Concomitant]
  9. INSULIN REGULAR -HUMAN- INJ S.S. [Concomitant]
  10. IPRATROPIUM BR 0.02% INH SOLN [Concomitant]
  11. MULTIVITAMIN TAB [Concomitant]
  12. NITROGLYCERIN 2% OINT, TOP [Concomitant]
  13. OMEPRAZOLE CAP CAP,SA 20MG [Concomitant]
  14. THIAMINE HCL TABLET TAB 100MG [Concomitant]

REACTIONS (3)
  - DIABETES MELLITUS INADEQUATE CONTROL [None]
  - DIABETIC KETOACIDOSIS [None]
  - INSULIN-REQUIRING TYPE II DIABETES MELLITUS [None]
